FAERS Safety Report 13351689 (Version 2)
Quarter: 2018Q2

REPORT INFORMATION
  Report Type: Spontaneous
  Country: US (occurrence: US)
  Receive Date: 20170320
  Receipt Date: 20180605
  Transmission Date: 20180711
  Serious: Yes (Hospitalization)
  Sender: FDA-Public Use
  Company Number: US-PFIZER INC-2017113498

PATIENT
  Age: 61 Year
  Sex: Male
  Weight: 82.55 kg

DRUGS (16)
  1. MYCOPHENOLATE [Concomitant]
     Active Substance: MYCOPHENOLIC ACID
     Indication: IMMUNOSUPPRESSION
     Dosage: 500 MG, 2X/DAY
  2. ATORVASTATIN [Concomitant]
     Active Substance: ATORVASTATIN
     Indication: BLOOD CHOLESTEROL ABNORMAL
     Dosage: 80 MG, 1X/DAY (AT BED TIME)
  3. COQ 10 [Concomitant]
     Active Substance: UBIDECARENONE
     Indication: CARDIOVASCULAR EVENT PROPHYLAXIS
     Dosage: 100 MG, DAILY
  4. LYRICA [Suspect]
     Active Substance: PREGABALIN
     Indication: DIABETIC NEUROPATHY
     Dosage: 100 MG, 2X/DAY
     Route: 048
     Dates: start: 201610
  5. TORSEMIDE. [Concomitant]
     Active Substance: TORSEMIDE
     Indication: SWELLING
     Dosage: 2.5MG AS NEEDED ONCE A DAY
  6. LANTUS [Concomitant]
     Active Substance: INSULIN GLARGINE
     Indication: DIABETES MELLITUS
     Dosage: 68 IU, DAILY, (44 UNITS IN MORNING AND 24 UNITS IN NIGHT)
  7. CANNABIDIOL [Suspect]
     Active Substance: CANNABIDIOL
     Dosage: UNK
  8. BABY ASPIRIN [Concomitant]
     Active Substance: ASPIRIN
     Dosage: 81 MG, 1X/DAY
  9. NEXIUM [Concomitant]
     Active Substance: ESOMEPRAZOLE MAGNESIUM
     Indication: GASTROOESOPHAGEAL REFLUX DISEASE
     Dosage: 40 MG, 1X/DAY (AT NIGHT)
     Route: 048
  10. CALCIUM CITRATE + D [Concomitant]
     Dosage: 200 IU, 2X/DAY
     Route: 048
  11. PROGRAF [Concomitant]
     Active Substance: TACROLIMUS\TACROLIMUS ANHYDROUS
     Indication: IMMUNOSUPPRESSION
     Dosage: 1 MG, 2X/DAY
  12. INSULIN LISPRO [Concomitant]
     Active Substance: INSULIN LISPRO
     Indication: DIABETES MELLITUS
     Dosage: UNK UNK, 1X/DAY (22 UNITS INJECTABLES, ONCE DAILY IN THE EVENING)
  13. SLOW-MAG [Concomitant]
     Active Substance: MAGNESIUM CHLORIDE
     Dosage: ONE TABLET 2X/DAY (119 MG-71.5 MG,)
     Route: 048
  14. VALSARTAN. [Concomitant]
     Active Substance: VALSARTAN
     Indication: HYPERTENSION
     Dosage: 40 MG, 2X/DAY
  15. SULFAMETHOXAZOLE AND TRIMETHOPRIM [Concomitant]
     Active Substance: SULFAMETHOXAZOLE\TRIMETHOPRIM
     Indication: INFECTION
     Dosage: UNK, 1X/DAY (SULFAMETHOXAZOLE-400MG, TRIMETHOPRIM-80MG)
     Route: 048
  16. CENTRUM [Concomitant]
     Active Substance: VITAMINS
     Dosage: UNK

REACTIONS (3)
  - Memory impairment [Recovering/Resolving]
  - Chromaturia [Unknown]
  - Weight increased [Unknown]

NARRATIVE: CASE EVENT DATE: 201612
